FAERS Safety Report 16898939 (Version 1)
Quarter: 2019Q4

REPORT INFORMATION
  Report Type: Spontaneous
  Country: CA (occurrence: CA)
  Receive Date: 20191009
  Receipt Date: 20191009
  Transmission Date: 20200122
  Serious: No
  Sender: FDA-Public Use
  Company Number: CA-BEH-2019107845

PATIENT
  Age: 50 Year
  Sex: Male

DRUGS (4)
  1. ALBUREX [Suspect]
     Active Substance: ALBUMIN HUMAN
     Dosage: 4/4; 100 ML; USE OF PUMP
     Route: 065
  2. ALBUREX [Suspect]
     Active Substance: ALBUMIN HUMAN
     Dosage: UNK
     Route: 065
     Dates: start: 20190927, end: 20190927
  3. ALBUREX [Suspect]
     Active Substance: ALBUMIN HUMAN
     Dosage: UNK
     Route: 065
     Dates: start: 20190927, end: 20190927
  4. ALBUREX [Suspect]
     Active Substance: ALBUMIN HUMAN
     Dosage: UNK
     Route: 065
     Dates: start: 20190927, end: 20190927

REACTIONS (1)
  - Pyrexia [Unknown]

NARRATIVE: CASE EVENT DATE: 20190927
